FAERS Safety Report 6408811-8 (Version None)
Quarter: 2009Q4

REPORT INFORMATION
  Report Type: 
  Country: None (occurrence: None)
  Receive Date: 20091021
  Receipt Date: 20091012
  Transmission Date: 20100525
  Serious: Yes (Hospitalization)
  Sender: FDA-Public Use
  Company Number: B0598023A

PATIENT
  Age: 37 Year
  Sex: Male

DRUGS (1)
  1. ATRIANCE [Suspect]

REACTIONS (1)
  - QUADRIPLEGIA [None]
